FAERS Safety Report 14586084 (Version 10)
Quarter: 2020Q1

REPORT INFORMATION
  Report Type: Report from Study
  Country: US (occurrence: US)
  Receive Date: 20180301
  Receipt Date: 20200131
  Transmission Date: 20200409
  Serious: Yes (Hospitalization, Other)
  Sender: FDA-Public Use
  Company Number: PHEH2018US006944

PATIENT
  Sex: Male

DRUGS (1)
  1. ENTRESTO [Suspect]
     Active Substance: SACUBITRIL\VALSARTAN
     Indication: PRODUCT USED FOR UNKNOWN INDICATION
     Dosage: UNK
     Route: 065

REACTIONS (22)
  - General physical health deterioration [Unknown]
  - Heart valve incompetence [Unknown]
  - Arterial occlusive disease [Unknown]
  - Pulmonary oedema [Unknown]
  - Cardiac failure [Unknown]
  - Diabetes mellitus [Unknown]
  - Renal failure [Unknown]
  - Myocardial infarction [Unknown]
  - Cardiac arrest [Unknown]
  - Blood cholesterol abnormal [Unknown]
  - Post procedural complication [Unknown]
  - Staphylococcal infection [Unknown]
  - Dyspnoea [Not Recovered/Not Resolved]
  - Fatigue [Unknown]
  - Microvascular coronary artery disease [Unknown]
  - Malaise [Unknown]
  - Chest pain [Unknown]
  - Hypertension [Unknown]
  - Cardiac disorder [Unknown]
  - Decreased activity [Unknown]
  - Stress [Unknown]
  - Lower limb fracture [Unknown]
